FAERS Safety Report 10154756 (Version 1)
Quarter: 2014Q2

REPORT INFORMATION
  Report Type: Spontaneous
  Country: US (occurrence: US)
  Receive Date: 20140506
  Receipt Date: 20140506
  Transmission Date: 20141212
  Serious: No
  Sender: FDA-Public Use
  Company Number: US-PFIZER INC-2014122525

PATIENT
  Age: 50 Year
  Sex: Male
  Weight: 81.63 kg

DRUGS (7)
  1. GABAPENTIN [Suspect]
     Indication: NEUROPATHY PERIPHERAL
     Dosage: 300 MG, 3X/DAY
     Route: 048
  2. GABAPENTIN [Suspect]
     Dosage: 500 MG, 3X/DAY
     Route: 048
  3. GABAPENTIN [Suspect]
     Dosage: 800 MG, 3X/DAY
     Route: 048
     Dates: end: 201403
  4. HYDROCODONE [Concomitant]
     Indication: BACK INJURY
     Dosage: UNK
  5. ZOCOR [Concomitant]
     Indication: BLOOD CHOLESTEROL INCREASED
     Dosage: UNK
  6. NORVASC [Concomitant]
     Indication: HYPERTENSION
     Dosage: UNK
  7. LISINOPRIL [Concomitant]
     Indication: HYPERTENSION
     Dosage: UNK

REACTIONS (2)
  - Drug ineffective [Unknown]
  - Abdominal discomfort [Unknown]
